FAERS Safety Report 7003677-X (Version None)
Quarter: 2010Q3

REPORT INFORMATION
  Report Type: 
  Country: None (occurrence: None)
  Receive Date: 20100920
  Receipt Date: 20090731
  Transmission Date: 20110219
  Serious: No
  Sender: FDA-Public Use
  Company Number: US-WYE-H09942509

PATIENT
  Sex: Female
  Weight: 74.46 kg

DRUGS (1)
  1. PROTONIX [Suspect]
     Indication: GASTROOESOPHAGEAL REFLUX DISEASE
     Route: 048
     Dates: start: 20090501

REACTIONS (4)
  - ABDOMINAL PAIN UPPER [None]
  - DEFAECATION URGENCY [None]
  - DIARRHOEA [None]
  - PRODUCT QUALITY ISSUE [None]
